FAERS Safety Report 20582332 (Version 1)
Quarter: 2022Q1

REPORT INFORMATION
  Report Type: Report from Study
  Country: US (occurrence: US)
  Receive Date: 20220311
  Receipt Date: 20220311
  Transmission Date: 20220423
  Serious: Yes (Death, Other)
  Sender: FDA-Public Use
  Company Number: US-BIOVITRUM-2022US03486

PATIENT
  Age: 44 Year
  Sex: Female

DRUGS (2)
  1. ZINC [Suspect]
     Active Substance: ZINC
     Indication: Hepatitis alcoholic
  2. ANAKINRA [Suspect]
     Active Substance: ANAKINRA
     Indication: Hepatitis alcoholic

REACTIONS (3)
  - Septic shock [Fatal]
  - Oesophageal varices haemorrhage [Recovered/Resolved]
  - Acute kidney injury [Not Recovered/Not Resolved]
